FAERS Safety Report 14275647 (Version 7)
Quarter: 2018Q4

REPORT INFORMATION
  Report Type: Other
  Country: NL (occurrence: NL)
  Receive Date: 20171212
  Receipt Date: 20181116
  Transmission Date: 20190204
  Serious: Yes (Hospitalization, Other)
  Sender: FDA-Public Use
  Company Number: NL-ASPEN-GLO2017NL008136

PATIENT
  Age: 62 Year
  Sex: Male

DRUGS (8)
  1. DEXAMETHASONE. [Suspect]
     Active Substance: DEXAMETHASONE
     Indication: METASTASES TO BONE
     Dosage: 16 MG, QD
     Route: 065
  2. AMITRIPTYLINE [Interacting]
     Active Substance: AMITRIPTYLINE
     Indication: METASTASES TO BONE
  3. DEXAMETHASONE. [Interacting]
     Active Substance: DEXAMETHASONE
     Indication: PAIN
  4. ENZALUTAMIDE [Interacting]
     Active Substance: ENZALUTAMIDE
     Indication: HORMONE-REFRACTORY PROSTATE CANCER
     Dosage: UNK
     Route: 065
  5. FENTANYL. [Suspect]
     Active Substance: FENTANYL
     Indication: PAIN
     Dosage: UNK, PATCH
     Route: 062
  6. AMITRIPTYLINE [Interacting]
     Active Substance: AMITRIPTYLINE
     Indication: PAIN
     Dosage: UNK
     Route: 062
  7. FENTANYL. [Suspect]
     Active Substance: FENTANYL
     Indication: METASTASES TO BONE
     Dosage: 0.075 MG/H
     Route: 062
  8. PREGABALIN. [Interacting]
     Active Substance: PREGABALIN
     Indication: PAIN
     Dosage: UNK
     Route: 062

REACTIONS (8)
  - Malignant neoplasm progression [Recovering/Resolving]
  - Drug ineffective [Unknown]
  - Spinal cord compression [Recovering/Resolving]
  - Pain [Recovering/Resolving]
  - Thoracic vertebral fracture [Unknown]
  - Drug interaction [Unknown]
  - Cervical vertebral fracture [Unknown]
  - Drug effect decreased [Unknown]
